FAERS Safety Report 4931651-3 (Version None)
Quarter: 2006Q1

REPORT INFORMATION
  Report Type: 
  Country: None (occurrence: None)
  Receive Date: 20060303
  Receipt Date: 20051130
  Transmission Date: 20060701
  Serious: Yes (Other)
  Sender: FDA-Public Use
  Company Number: US-BRISTOL-MYERS SQUIBB COMPANY-13199179

PATIENT
  Age: 55 Year
  Sex: Male
  Weight: 88 kg

DRUGS (8)
  1. ERBITUX [Suspect]
     Indication: COLON CANCER METASTATIC
     Route: 042
     Dates: start: 20051101, end: 20051101
  2. ALOXI [Concomitant]
     Indication: PREMEDICATION
     Route: 042
     Dates: start: 20051101
  3. BENADRYL [Concomitant]
     Indication: PREMEDICATION
     Route: 042
     Dates: start: 20051101
  4. DECADRON SRC [Concomitant]
     Indication: PREMEDICATION
     Route: 042
     Dates: start: 20051101
  5. TYLENOL (CAPLET) [Concomitant]
     Indication: PREMEDICATION
     Dosage: THE PATIENT SOMETIMES RECEIVES.
  6. ARANESP [Concomitant]
     Dosage: ADMINISTERED IN NEW YORK.
  7. IRINOTECAN HCL [Concomitant]
     Dosage: ADMINISTERED IN NEW YORK.
  8. PROCRIT [Concomitant]
     Dosage: ADMINISTERED IN NEW YORK.

REACTIONS (3)
  - ANAEMIA [None]
  - DERMATITIS ACNEIFORM [None]
  - PRURITUS [None]
